FAERS Safety Report 10170471 (Version 2)
Quarter: 2014Q2

REPORT INFORMATION
  Report Type: Report from Study
  Country: BR (occurrence: BR)
  Receive Date: 20140513
  Receipt Date: 20140515
  Transmission Date: 20141212
  Serious: Yes (Hospitalization)
  Sender: FDA-Public Use
  Company Number: PHHO2014BR006783

PATIENT
  Age: 34 Year
  Sex: Male
  Weight: 91.6 kg

DRUGS (2)
  1. AMN107 [Suspect]
     Indication: CHRONIC MYELOID LEUKAEMIA
     Dosage: 400 MG, BID
     Route: 048
     Dates: start: 201005
  2. AMN107 [Suspect]
     Dosage: UNK
     Route: 048
     Dates: start: 20140430

REACTIONS (1)
  - Limb injury [Recovered/Resolved]
